FAERS Safety Report 7454052-5 (Version None)
Quarter: 2011Q2

REPORT INFORMATION
  Report Type: 
  Country: None (occurrence: None)
  Receive Date: 20110502
  Receipt Date: 20110422
  Transmission Date: 20111010
  Serious: Yes (Other)
  Sender: FDA-Public Use
  Company Number: US-MERCK-0706USA00866

PATIENT
  Age: 71 Year
  Sex: Female

DRUGS (1)
  1. FOSAMAX [Suspect]
     Indication: CALCIUM DEFICIENCY
     Route: 048
     Dates: start: 19950101, end: 19980101

REACTIONS (30)
  - ORAL DISORDER [None]
  - HYPERTENSION [None]
  - SPINAL OSTEOARTHRITIS [None]
  - SKIN EXFOLIATION [None]
  - PHLEBITIS [None]
  - PULMONARY EMBOLISM [None]
  - SKIN DISORDER [None]
  - HYPERLIPIDAEMIA [None]
  - MUSCLE SPASMS [None]
  - DERMATITIS [None]
  - POLYMYALGIA RHEUMATICA [None]
  - HYPERTENSIVE NEPHROPATHY [None]
  - MALIGNANT HYPERTENSION [None]
  - PERIPHERAL VASCULAR DISORDER [None]
  - PAIN IN JAW [None]
  - VARICOPHLEBITIS [None]
  - CELLULITIS [None]
  - HAIR DISORDER [None]
  - OSTEOPOROSIS [None]
  - VENOUS INSUFFICIENCY [None]
  - EATING DISORDER [None]
  - VENOUS THROMBOSIS [None]
  - BACK PAIN [None]
  - ORAL INFECTION [None]
  - ARTHRALGIA [None]
  - RENAL FAILURE CHRONIC [None]
  - ATROPHIC VULVOVAGINITIS [None]
  - VISUAL IMPAIRMENT [None]
  - EMBOLISM VENOUS [None]
  - AMNESIA [None]
